FAERS Safety Report 14577268 (Version 1)
Quarter: 2018Q1

REPORT INFORMATION
  Report Type: Spontaneous
  Country: US (occurrence: US)
  Receive Date: 20180227
  Receipt Date: 20180227
  Transmission Date: 20180509
  Serious: Yes (Death)
  Sender: FDA-Public Use
  Company Number: PHEH2018US007812

PATIENT
  Sex: Female

DRUGS (6)
  1. TAFINLAR [Suspect]
     Active Substance: DABRAFENIB MESYLATE
     Indication: PANCREATIC CARCINOMA
     Dosage: 150 MG, BID (TWICE DAILY)
     Route: 048
     Dates: start: 20180103
  2. MEKINIST [Suspect]
     Active Substance: TRAMETINIB DIMETHYL SULFOXIDE
     Indication: BENIGN CARTILAGE NEOPLASM
  3. MEKINIST [Suspect]
     Active Substance: TRAMETINIB DIMETHYL SULFOXIDE
     Indication: BENIGN BONE NEOPLASM
  4. TAFINLAR [Suspect]
     Active Substance: DABRAFENIB MESYLATE
     Indication: BENIGN BONE NEOPLASM
  5. TAFINLAR [Suspect]
     Active Substance: DABRAFENIB MESYLATE
     Indication: BENIGN CARTILAGE NEOPLASM
  6. MEKINIST [Suspect]
     Active Substance: TRAMETINIB DIMETHYL SULFOXIDE
     Indication: PANCREATIC CARCINOMA
     Dosage: 2 MG, QD (DAILY)
     Route: 048
     Dates: start: 20180103

REACTIONS (2)
  - Pancreatic carcinoma [Fatal]
  - Malignant neoplasm progression [Fatal]
